FAERS Safety Report 9750827 (Version 1)
Quarter: 2013Q4

REPORT INFORMATION
  Report Type: Spontaneous
  Country: US (occurrence: US)
  Receive Date: 20131212
  Receipt Date: 20131212
  Transmission Date: 20140711
  Serious: No
  Sender: FDA-Public Use
  Company Number: US-BIOGENIDEC-2013BI101053

PATIENT
  Sex: Female

DRUGS (12)
  1. TECFIDERA [Suspect]
     Indication: MULTIPLE SCLEROSIS
     Route: 048
     Dates: start: 20130801
  2. AMANTADINE HCL [Concomitant]
  3. BETA CAROTENE [Concomitant]
  4. CALCIUM 500 [Concomitant]
  5. CYMBALTA [Concomitant]
  6. FISH OIL [Concomitant]
  7. GABAPENTIN [Concomitant]
  8. INDERAL LA [Concomitant]
  9. LIPITOR [Concomitant]
  10. SELENIUM [Concomitant]
  11. VITAMIN B COMPLEX [Concomitant]
  12. SYNTHROID [Concomitant]

REACTIONS (1)
  - Pruritus [Unknown]
